FAERS Safety Report 4336674-3 (Version None)
Quarter: 2004Q2

REPORT INFORMATION
  Report Type: 
  Country: None (occurrence: None)
  Receive Date: 20040412
  Receipt Date: 20040330
  Transmission Date: 20050107
  Serious: Yes (Hospitalization)
  Sender: FDA-Public Use
  Company Number: JP-GLAXOSMITHKLINE-B0328648A

PATIENT
  Age: 9 Year
  Sex: Male
  Weight: 32 kg

DRUGS (26)
  1. ALKERAN [Suspect]
     Indication: STEM CELL TRANSPLANT
     Route: 042
     Dates: start: 20021025, end: 20021026
  2. IFOSFAMIDE [Suspect]
     Indication: STEM CELL TRANSPLANT
     Route: 042
     Dates: start: 20021020, end: 20021024
  3. NEU-UP [Concomitant]
     Route: 042
     Dates: start: 20021103, end: 20021114
  4. GRAN [Concomitant]
     Dates: start: 20021115, end: 20021122
  5. HAPTOGLOBIN [Concomitant]
     Dates: start: 20021028, end: 20021029
  6. HAPTOGLOBIN [Concomitant]
     Dates: start: 20021111, end: 20021111
  7. IBUPROFEN [Concomitant]
     Route: 048
     Dates: start: 20021028, end: 20021029
  8. CODEINE PHOSPHATE [Concomitant]
     Route: 048
     Dates: start: 20021028, end: 20021029
  9. CODEINE PHOSPHATE [Concomitant]
     Route: 048
     Dates: start: 20021111, end: 20021111
  10. ATARAX [Concomitant]
     Dates: start: 20021028, end: 20021129
  11. SOLU-CORTEF [Concomitant]
     Dates: start: 20021028
  12. GAMMAGARD [Concomitant]
     Dates: start: 20021029, end: 20021217
  13. ANTITHROMBIN-3 [Concomitant]
     Dates: start: 20021030, end: 20021217
  14. POLARAMINE [Concomitant]
     Route: 048
     Dates: start: 20021031, end: 20021129
  15. AMIKACIN SULFATE [Concomitant]
     Dates: start: 20021102, end: 20021110
  16. DIFLUCAN [Concomitant]
     Route: 042
     Dates: start: 20021103, end: 20021122
  17. ZOVIRAX [Concomitant]
     Route: 042
     Dates: start: 20021103, end: 20021125
  18. METILON [Concomitant]
     Dates: start: 20021109, end: 20021111
  19. MODACIN [Concomitant]
     Route: 042
     Dates: start: 20021110, end: 20021122
  20. CARBENIN [Concomitant]
     Route: 042
     Dates: start: 20021110, end: 20021122
  21. BAKTAR [Concomitant]
     Route: 048
     Dates: start: 20021026
  22. POLYMYXIN B SULFATE [Concomitant]
     Route: 048
     Dates: start: 20021026
  23. DIFLUCAN [Concomitant]
     Route: 048
     Dates: start: 20021026, end: 20021102
  24. DIFLUCAN [Concomitant]
     Route: 048
     Dates: start: 20021123
  25. ALLOID G [Concomitant]
     Route: 048
     Dates: start: 20021026, end: 20021122
  26. ZOVIRAX [Concomitant]
     Route: 048
     Dates: start: 20021026, end: 20021102

REACTIONS (7)
  - DIARRHOEA [None]
  - HEPATIC FUNCTION ABNORMAL [None]
  - NAUSEA [None]
  - SEPSIS [None]
  - STOMATITIS [None]
  - URINE OUTPUT DECREASED [None]
  - VOMITING [None]
